FAERS Safety Report 7271478-3 (Version None)
Quarter: 2011Q1

REPORT INFORMATION
  Report Type: 
  Country: None (occurrence: None)
  Receive Date: 20110125
  Receipt Date: 20110125
  Transmission Date: 20110831
  Serious: Yes (Hospitalization, Disabling)
  Sender: FDA-Public Use
  Company Number: None

PATIENT
  Age: 41 Year
  Sex: Female
  Weight: 83.9154 kg

DRUGS (1)
  1. VIVITROL [Suspect]
     Indication: ALCOHOL DETOXIFICATION
     Dosage: 380MG ONCE MONTHLY IM
     Route: 030
     Dates: start: 20101027, end: 20101201

REACTIONS (10)
  - CHILLS [None]
  - VOMITING [None]
  - DIARRHOEA [None]
  - SCAR [None]
  - MEDICATION ERROR [None]
  - ABSCESS [None]
  - DRUG ADMINISTRATION ERROR [None]
  - NAUSEA [None]
  - INJECTION SITE CELLULITIS [None]
  - NECROSIS [None]
